FAERS Safety Report 21646391 (Version 3)
Quarter: 2022Q4

REPORT INFORMATION
  Report Type: Spontaneous
  Country: AU (occurrence: AU)
  Receive Date: 20221126
  Receipt Date: 20221223
  Transmission Date: 20230113
  Serious: Yes (Hospitalization, Other)
  Sender: FDA-Public Use
  Company Number: AU-ALXN-A202214420

PATIENT
  Age: 26 Year
  Sex: Female

DRUGS (2)
  1. SOLIRIS [Suspect]
     Active Substance: ECULIZUMAB
     Indication: Atypical haemolytic uraemic syndrome
     Dosage: UNK
     Route: 065
     Dates: start: 20200319
  2. PENICILLIN                         /00000901/ [Concomitant]
     Indication: Antibiotic prophylaxis
     Dosage: UNK
     Route: 065

REACTIONS (6)
  - Acute psychosis [Recovered/Resolved]
  - Thrombotic microangiopathy [Recovered/Resolved]
  - Cerebral microhaemorrhage [Recovered/Resolved]
  - Urinary tract infection bacterial [Recovered/Resolved]
  - Brain stem microhaemorrhage [Recovered/Resolved]
  - Cerebellar microhaemorrhage [Recovered/Resolved]

NARRATIVE: CASE EVENT DATE: 20200319
